FAERS Safety Report 9981693 (Version 1)
Quarter: 2014Q1

REPORT INFORMATION
  Report Type: Spontaneous
  Country: US (occurrence: None)
  Receive Date: 20140131
  Receipt Date: 20140131
  Transmission Date: 20141002
  Serious: Yes (Other)
  Sender: FDA-Public Use
  Company Number: 096398

PATIENT
  Sex: Male
  Weight: 61.2 kg

DRUGS (1)
  1. KEPPRA [Suspect]
     Indication: CONVULSION
     Dates: start: 2012, end: 2013

REACTIONS (3)
  - Surgery [None]
  - Headache [None]
  - Intentional drug misuse [None]
